FAERS Safety Report 22044281 (Version 2)
Quarter: 2023Q1

REPORT INFORMATION
  Report Type: Spontaneous
  Country: FR (occurrence: FR)
  Receive Date: 20230228
  Receipt Date: 20230327
  Transmission Date: 20230418
  Serious: Yes (Other)
  Sender: FDA-Public Use
  Company Number: None

PATIENT
  Age: 48 Year
  Sex: Male
  Weight: 75 kg

DRUGS (8)
  1. CLINDAMYCIN [Suspect]
     Active Substance: CLINDAMYCIN
     Indication: Arthritis bacterial
     Dosage: 600 MILLIGRAM, Q8H (600 MG TID, 1800 MG /DAY)
     Route: 048
     Dates: start: 20221209
  2. MOXIFLOXACIN HYDROCHLORIDE [Suspect]
     Active Substance: MOXIFLOXACIN HYDROCHLORIDE
     Indication: Arthritis bacterial
     Dosage: 400 MILLIGRAM, QD
     Route: 048
     Dates: start: 20221209
  3. Lacteol [Concomitant]
     Dosage: UNK
     Route: 065
  4. ACETAMINOPHEN [Concomitant]
     Active Substance: ACETAMINOPHEN
     Indication: Arthritis bacterial
     Dosage: UNK
     Route: 065
  5. SUBOXONE [Concomitant]
     Active Substance: BUPRENORPHINE HYDROCHLORIDE\NALOXONE HYDROCHLORIDE
     Dosage: UNK
     Route: 065
  6. SERTRALINE HYDROCHLORIDE [Concomitant]
     Active Substance: SERTRALINE HYDROCHLORIDE
     Dosage: UNK
     Route: 065
  7. ARIPIPRAZOLE [Concomitant]
     Active Substance: ARIPIPRAZOLE
     Dosage: UNK
     Route: 065
  8. NEFOPAM HYDROCHLORIDE [Concomitant]
     Active Substance: NEFOPAM HYDROCHLORIDE
     Dosage: UNK
     Route: 065

REACTIONS (1)
  - Thrombocytopenia [Recovered/Resolved]

NARRATIVE: CASE EVENT DATE: 20221221
